FAERS Safety Report 6736590-3 (Version None)
Quarter: 2010Q2

REPORT INFORMATION
  Report Type: 
  Country: None (occurrence: None)
  Receive Date: 20100521
  Receipt Date: 20100519
  Transmission Date: 20101027
  Serious: Yes (Life-Threatening, Hospitalization, Other)
  Sender: FDA-Public Use
  Company Number: FR-BAYER-200934439GPV

PATIENT
  Age: 84 Year
  Sex: Female

DRUGS (6)
  1. XARELTO [Suspect]
     Indication: THROMBOSIS PROPHYLAXIS
     Route: 048
     Dates: start: 20090911, end: 20090915
  2. CIFLOX [Suspect]
     Indication: CHOLECYSTITIS ACUTE
     Dates: start: 20090914
  3. AUGMENTIN '125' [Suspect]
     Indication: CHOLECYSTITIS ACUTE
     Dates: start: 20090914
  4. TARKA [Concomitant]
     Indication: DRUG USE FOR UNKNOWN INDICATION
     Dates: end: 20090915
  5. NEXIUM [Concomitant]
     Indication: DRUG USE FOR UNKNOWN INDICATION
     Dates: end: 20090915
  6. POLY-KARAYA [Concomitant]
     Indication: DRUG USE FOR UNKNOWN INDICATION
     Dates: end: 20090915

REACTIONS (8)
  - ABDOMINAL PAIN [None]
  - ANURIA [None]
  - CHOLECYSTITIS ACUTE [None]
  - CYTOLYTIC HEPATITIS [None]
  - DEEP VEIN THROMBOSIS [None]
  - PYREXIA [None]
  - RENAL FAILURE ACUTE [None]
  - VOMITING [None]
